FAERS Safety Report 12366915 (Version 3)
Quarter: 2016Q3

REPORT INFORMATION
  Report Type: Spontaneous
  Country: US (occurrence: US)
  Receive Date: 20160513
  Receipt Date: 20160722
  Transmission Date: 20161109
  Serious: Yes (Death, Hospitalization)
  Sender: FDA-Public Use
  Company Number: US-UNITED THERAPEUTICS-UNT-2016-007483

PATIENT
  Sex: Female

DRUGS (2)
  1. REMODULIN [Suspect]
     Active Substance: TREPROSTINIL
     Indication: PULMONARY ARTERIAL HYPERTENSION
     Dosage: 0.056 ?G/KG, Q72H
     Route: 058
     Dates: start: 201602
  2. REMODULIN [Suspect]
     Active Substance: TREPROSTINIL
     Dosage: 0.049 ?G/KG, CONTINUING
     Route: 058
     Dates: start: 20160522

REACTIONS (4)
  - Pulmonary arterial hypertension [Fatal]
  - Dyspnoea [Fatal]
  - Right ventricular failure [Fatal]
  - Urine output decreased [Fatal]

NARRATIVE: CASE EVENT DATE: 201605
